FAERS Safety Report 18188440 (Version 1)
Quarter: 2020Q3

REPORT INFORMATION
  Report Type: Report from Study
  Country: US (occurrence: US)
  Receive Date: 20200824
  Receipt Date: 20200824
  Transmission Date: 20201103
  Serious: Yes (Hospitalization, Other)
  Sender: FDA-Public Use
  Company Number: US-MYLANLABS-2020M1072678

PATIENT
  Sex: Female

DRUGS (9)
  1. ESTRADIOL. [Suspect]
     Active Substance: ESTRADIOL
     Indication: ASSISTED FERTILISATION
     Dosage: UNK (BEFORE LMP (CONTINUED))
     Route: 065
  2. BUSPAR [Suspect]
     Active Substance: BUSPIRONE HYDROCHLORIDE
     Indication: DEPRESSION
     Dosage: UNK (BEFORE LMP (CONTINUED))
     Route: 065
     Dates: end: 20170828
  3. HUMALIN [Suspect]
     Active Substance: INSULIN NOS
     Indication: GESTATIONAL DIABETES
     Dosage: UNK (16 WEEKS (CONTINUED)
     Route: 065
     Dates: end: 20180728
  4. HUMALOG [Suspect]
     Active Substance: INSULIN LISPRO
     Indication: GESTATIONAL DIABETES
     Dosage: UNK (16 WEEKS (CONTINUED))
     Route: 065
     Dates: end: 20170828
  5. PROZAC [Suspect]
     Active Substance: FLUOXETINE HYDROCHLORIDE
     Indication: DEPRESSION
     Dosage: UNK (BEFORE LMP (CONTINUED)
     Route: 065
     Dates: end: 20170828
  6. LEVOTHYROXINE. [Suspect]
     Active Substance: LEVOTHYROXINE
     Indication: HYPOTHYROIDISM
     Dosage: UNK (BEFORE LMP (CONTINUED))
     Route: 065
     Dates: end: 20170828
  7. ABILIFY [Suspect]
     Active Substance: ARIPIPRAZOLE
     Indication: DEPRESSION
     Dosage: 5 MILLIGRAM (BEFORE LMP (CONTINUED)
     Route: 065
     Dates: end: 20170828
  8. REMERON [Suspect]
     Active Substance: MIRTAZAPINE
     Indication: DEPRESSION
     Dosage: UNK (BEFORE LMP (CONTINUED))
     Route: 065
     Dates: end: 20170828
  9. PROGESTERONE. [Suspect]
     Active Substance: PROGESTERONE
     Indication: ASSISTED FERTILISATION
     Dosage: UNK (BEFORE LMP (CONTINUED)
     Route: 065

REACTIONS (5)
  - Maternal exposure during pregnancy [Recovered/Resolved]
  - Gestational diabetes [Recovered/Resolved]
  - Vaginal haemorrhage [Recovered/Resolved]
  - Premature labour [Recovered/Resolved]
  - Gestational hypertension [Recovered/Resolved]

NARRATIVE: CASE EVENT DATE: 2017
